FAERS Safety Report 6374810-8 (Version None)
Quarter: 2009Q3

REPORT INFORMATION
  Report Type: 
  Country: None (occurrence: None)
  Receive Date: 20090924
  Receipt Date: 20090915
  Transmission Date: 20100115
  Serious: Yes (Hospitalization)
  Sender: FDA-Public Use
  Company Number: FR-ASTRAZENECA-2009SE13456

PATIENT
  Age: 18652 Day
  Sex: Female

DRUGS (10)
  1. DIPRIVAN [Suspect]
     Route: 042
     Dates: start: 20090113, end: 20090120
  2. VFEND [Suspect]
     Indication: ASPERGILLOSIS
     Route: 042
     Dates: start: 20090105, end: 20090120
  3. ZOPHREN [Suspect]
     Route: 042
     Dates: start: 20090117, end: 20090120
  4. ERYTHROCINE [Suspect]
     Indication: INFECTION
     Route: 042
     Dates: start: 20090115
  5. ACUPAN [Suspect]
     Route: 042
     Dates: start: 20090116, end: 20090120
  6. DEBRIDAT [Suspect]
     Indication: PAIN
     Route: 042
     Dates: start: 20090115, end: 20090120
  7. MOTILIUM [Suspect]
     Route: 048
     Dates: start: 20090115, end: 20090120
  8. XANAX [Suspect]
     Indication: ANXIETY
     Route: 048
     Dates: start: 20090117, end: 20090120
  9. GRANOCYTE [Suspect]
     Route: 042
     Dates: start: 20090107, end: 20090118
  10. CHEMOTHERAPY [Concomitant]

REACTIONS (2)
  - HYPOTENSION [None]
  - SINUS BRADYCARDIA [None]
